FAERS Safety Report 16303585 (Version 1)
Quarter: 2019Q2

REPORT INFORMATION
  Report Type: Report from Study
  Country: US (occurrence: US)
  Receive Date: 20190513
  Receipt Date: 20190513
  Transmission Date: 20190711
  Serious: Yes (Hospitalization, Other)
  Sender: FDA-Public Use
  Company Number: US-BAYER-2019-089864

PATIENT
  Age: 71 Year
  Sex: Female

DRUGS (1)
  1. BETASERON [Suspect]
     Active Substance: INTERFERON BETA-1B
     Indication: PROGRESSIVE MULTIPLE SCLEROSIS
     Dosage: 0.25 MG/ML, QOD
     Route: 058
     Dates: start: 1992

REACTIONS (10)
  - Multiple sclerosis relapse [Not Recovered/Not Resolved]
  - Injection site erythema [None]
  - Bladder dilatation [None]
  - Depressed mood [None]
  - Drug ineffective [None]
  - Diarrhoea [None]
  - Fatigue [None]
  - Incorrect dose administered [None]
  - Product dose omission [None]
  - Gastric disorder [None]

NARRATIVE: CASE EVENT DATE: 201903
